FAERS Safety Report 13615865 (Version 1)
Quarter: 2017Q2

REPORT INFORMATION
  Report Type: Spontaneous
  Country: US (occurrence: US)
  Receive Date: 20170605
  Receipt Date: 20170605
  Transmission Date: 20170830
  Serious: Yes (Life-Threatening, Hospitalization)
  Sender: FDA-Public Use
  Company Number: None

PATIENT
  Age: 64 Year
  Sex: Male
  Weight: 61.6 kg

DRUGS (1)
  1. CARVEDILOL. [Suspect]
     Active Substance: CARVEDILOL
     Indication: CARDIAC FAILURE CONGESTIVE
     Route: 048
     Dates: start: 20121221, end: 20140929

REACTIONS (5)
  - Hypotension [None]
  - Mental status changes [None]
  - Respiratory distress [None]
  - Bradycardia [None]
  - Bronchospasm [None]

NARRATIVE: CASE EVENT DATE: 20141005
